FAERS Safety Report 15785056 (Version 3)
Quarter: 2019Q1

REPORT INFORMATION
  Report Type: Spontaneous
  Country: US (occurrence: US)
  Receive Date: 20190103
  Receipt Date: 20190306
  Transmission Date: 20190417
  Serious: No
  Sender: FDA-Public Use
  Company Number: US-PFIZER INC-2019002324

PATIENT
  Age: 51 Year
  Sex: Female

DRUGS (4)
  1. DOCETAXEL. [Suspect]
     Active Substance: DOCETAXEL
     Indication: BREAST CANCER FEMALE
     Dosage: UNK
     Dates: start: 20141219, end: 20151122
  2. DOCETAXEL. [Suspect]
     Active Substance: DOCETAXEL
     Dosage: UNK
     Dates: start: 201412, end: 201511
  3. DOCEFREZ [Suspect]
     Active Substance: DOCETAXEL ANHYDROUS
     Dosage: UNK
     Dates: start: 201412, end: 201511
  4. TAXOTERE [Suspect]
     Active Substance: DOCETAXEL
     Dosage: UNK
     Dates: start: 201412, end: 201511

REACTIONS (6)
  - Madarosis [Not Recovered/Not Resolved]
  - Hair texture abnormal [Not Recovered/Not Resolved]
  - Hair colour changes [Not Recovered/Not Resolved]
  - Hair disorder [Not Recovered/Not Resolved]
  - Alopecia [Not Recovered/Not Resolved]
  - Depression [Unknown]

NARRATIVE: CASE EVENT DATE: 201412
